FAERS Safety Report 4439039-9 (Version None)
Quarter: 2004Q3

REPORT INFORMATION
  Report Type: 
  Country: None (occurrence: None)
  Receive Date: 20040830
  Receipt Date: 20040824
  Transmission Date: 20050211
  Serious: Yes (Other)
  Sender: FDA-Public Use
  Company Number: 2004-07-0356

PATIENT
  Age: 42 Year
  Sex: Male

DRUGS (4)
  1. REBETOL [Suspect]
     Indication: HEPATITIS C
     Dosage: 800 MG ORAL
     Route: 048
     Dates: start: 20040412, end: 20040705
  2. INTRON A [Suspect]
     Indication: HEPATITIS C
     Dosage: SEE IMAGE
     Route: 030
     Dates: start: 20040412, end: 20040425
  3. INTRON A [Suspect]
     Indication: HEPATITIS C
     Dosage: SEE IMAGE
     Route: 030
     Dates: start: 20040426, end: 20040705
  4. FERON INJECTABLE POWDER [Suspect]
     Indication: HEPATITIS C
     Dosage: 6 MU   INTRAVENOUS
     Route: 042
     Dates: start: 20040329, end: 20040411

REACTIONS (6)
  - RETINAL DISORDER [None]
  - RETINAL EXUDATES [None]
  - RETINAL PIGMENT EPITHELIOPATHY [None]
  - VISION BLURRED [None]
  - VISUAL DISTURBANCE [None]
  - VISUAL FIELD DEFECT [None]
